FAERS Safety Report 8695131 (Version 2)
Quarter: 2013Q4

REPORT INFORMATION
  Report Type: Spontaneous
  Country: US (occurrence: US)
  Receive Date: 20120731
  Receipt Date: 20131031
  Transmission Date: 20140711
  Serious: Yes (Other)
  Sender: FDA-Public Use
  Company Number: US-009507513-1207USA010191

PATIENT
  Age: 60 Year
  Sex: Female

DRUGS (2)
  1. JANUMET [Suspect]
     Route: 048
  2. TYKERB [Suspect]
     Dosage: 1500 MG, QD
     Route: 048

REACTIONS (9)
  - Skin fissures [Unknown]
  - Pain in extremity [Unknown]
  - Malaise [Unknown]
  - Pruritus [Unknown]
  - Palmar-plantar erythrodysaesthesia syndrome [Unknown]
  - Diarrhoea [Unknown]
  - Drug interaction [Unknown]
  - Upper respiratory tract infection [Unknown]
  - Adverse event [Unknown]
